FAERS Safety Report 11416531 (Version 1)
Quarter: 2015Q3

REPORT INFORMATION
  Report Type: Report from Study
  Country: US (occurrence: US)
  Receive Date: 20150825
  Receipt Date: 20150825
  Transmission Date: 20151125
  Serious: Yes (Other)
  Sender: FDA-Public Use
  Company Number: US-JNJFOC-20150811596

PATIENT
  Sex: Female
  Weight: 95.26 kg

DRUGS (4)
  1. REMICADE [Suspect]
     Active Substance: INFLIXIMAB
     Indication: RHEUMATOID ARTHRITIS
     Dosage: INITIATED ON AN UNSPECIFIED DATE 5-6 YERS AGO
     Route: 042
  2. REMICADE [Suspect]
     Active Substance: INFLIXIMAB
     Indication: CROHN^S DISEASE
     Dosage: INITIATED ON AN UNSPECIFIED DATE 5-6 YERS AGO
     Route: 042
  3. REMICADE [Suspect]
     Active Substance: INFLIXIMAB
     Indication: CROHN^S DISEASE
     Route: 042
  4. REMICADE [Suspect]
     Active Substance: INFLIXIMAB
     Indication: RHEUMATOID ARTHRITIS
     Route: 042

REACTIONS (7)
  - Drug effect decreased [Unknown]
  - Hypoaesthesia [Recovering/Resolving]
  - Acne [Unknown]
  - Neoplasm malignant [Recovered/Resolved]
  - Rheumatoid arthritis [Not Recovered/Not Resolved]
  - Jaw disorder [Unknown]
  - Pruritus [Unknown]

NARRATIVE: CASE EVENT DATE: 2014
